FAERS Safety Report 19000267 (Version 1)
Quarter: 2021Q1

REPORT INFORMATION
  Report Type: Report from Study
  Country: None (occurrence: GB)
  Receive Date: 20210312
  Receipt Date: 20210312
  Transmission Date: 20210420
  Serious: Yes (Other)
  Sender: FDA-Public Use
  Company Number: GB-MDD US OPERATIONS-MDD202103-000452

PATIENT
  Age: 73 Year
  Sex: Male

DRUGS (12)
  1. MADOPAR DISPERSIBLE [Concomitant]
     Indication: PARKINSON^S DISEASE
  2. ADCAL D3 [Concomitant]
     Active Substance: CALCIUM CARBONATE\CHOLECALCIFEROL
     Dosage: NOT PROVIDED
  3. LAXIDO [Concomitant]
     Active Substance: POLYETHYLENE GLYCOL 3350\POTASSIUM CHLORIDE\SODIUM BICARBONATE\SODIUM CHLORIDE
     Dosage: NOT PROVIDED
  4. FOLIC ACID. [Concomitant]
     Active Substance: FOLIC ACID
     Dosage: 5MG
  5. MADOPAR CONTROLLED RELEASE [Concomitant]
     Indication: PARKINSON^S DISEASE
  6. MIRTAZAPINE. [Concomitant]
     Active Substance: MIRTAZAPINE
     Indication: PARKINSON^S DISEASE
  7. OPICAPONE [Concomitant]
     Active Substance: OPICAPONE
     Indication: PARKINSON^S DISEASE
  8. MADOPAR DISPERSIBLE [Concomitant]
  9. RISODRONATE [Concomitant]
     Dosage: NOT PROVIDED
  10. MADOPAR [Concomitant]
     Active Substance: BENSERAZIDE HYDROCHLORIDE\LEVODOPA
     Indication: PARKINSON^S DISEASE
  11. APOMORPHINE HYDROCHLORIDE [Suspect]
     Active Substance: APOMORPHINE HYDROCHLORIDE
     Indication: PARKINSON^S DISEASE
     Route: 058
     Dates: start: 20200114
  12. ROTIGOTINE [Concomitant]
     Active Substance: ROTIGOTINE
     Indication: PARKINSON^S DISEASE

REACTIONS (1)
  - Autoimmune haemolytic anaemia [Unknown]

NARRATIVE: CASE EVENT DATE: 2021
